FAERS Safety Report 12938568 (Version 1)
Quarter: 2016Q4

REPORT INFORMATION
  Report Type: Report from Study
  Country: BR (occurrence: BR)
  Receive Date: 20161115
  Receipt Date: 20161115
  Transmission Date: 20170207
  Serious: Yes (Hospitalization, Other)
  Sender: FDA-Public Use
  Company Number: PHHY2016BR088013

PATIENT
  Age: 56 Year
  Sex: Male
  Weight: 79 kg

DRUGS (3)
  1. SANDOSTATIN LAR DEPOT [Suspect]
     Active Substance: OCTREOTIDE ACETATE
     Indication: NEUROENDOCRINE CARCINOMA METASTATIC
     Dosage: 30 MG, QMO (ONCE A MONTH)
     Route: 030
     Dates: start: 201404, end: 201609
  2. AFINITOR [Suspect]
     Active Substance: EVEROLIMUS
     Indication: NEUROENDOCRINE CARCINOMA METASTATIC
     Dosage: 10 MG, UNK
     Route: 048
     Dates: start: 201404, end: 201607
  3. CAPECITABINE. [Concomitant]
     Active Substance: CAPECITABINE
     Indication: NEUROENDOCRINE CARCINOMA
     Route: 065

REACTIONS (16)
  - Angina pectoris [Unknown]
  - General physical health deterioration [Unknown]
  - Malaise [Unknown]
  - Cancer pain [Recovering/Resolving]
  - Malignant neoplasm progression [Unknown]
  - Drug ineffective [Unknown]
  - Neoplasm progression [Unknown]
  - Metastases to the mediastinum [Unknown]
  - Cardiac disorder [Unknown]
  - Dyspnoea [Unknown]
  - Pleural effusion [Unknown]
  - Pain [Unknown]
  - Metastases to liver [Recovering/Resolving]
  - Metastases to gastrointestinal tract [Unknown]
  - Metastases to pancreas [Unknown]
  - Asthenia [Unknown]

NARRATIVE: CASE EVENT DATE: 201601
